FAERS Safety Report 4311132-0 (Version None)
Quarter: 2004Q1

REPORT INFORMATION
  Report Type: 
  Country: None (occurrence: None)
  Receive Date: 20040302
  Receipt Date: 20040219
  Transmission Date: 20041129
  Serious: Yes (Hospitalization)
  Sender: FDA-Public Use
  Company Number: 2004011016

PATIENT
  Sex: Female

DRUGS (2)
  1. NEURONTIN [Suspect]
     Indication: TRIGEMINAL NEURALGIA
     Dosage: 1800 MG (TID), ORAL
     Route: 048
  2. CARBAMAZEPINE [Concomitant]

REACTIONS (4)
  - ATAXIA [None]
  - BALANCE DISORDER [None]
  - DIZZINESS [None]
  - FALL [None]
